FAERS Safety Report 7639650-8 (Version None)
Quarter: 2011Q3

REPORT INFORMATION
  Report Type: 
  Country: None (occurrence: None)
  Receive Date: 20110727
  Receipt Date: 20110722
  Transmission Date: 20111222
  Serious: Yes (Hospitalization, Other)
  Sender: FDA-Public Use
  Company Number: GB-PFIZER INC-2011097662

PATIENT
  Age: 75 Year
  Sex: Male

DRUGS (11)
  1. INVESTIGATIONAL DRUG [Suspect]
     Dosage: 160 MG, 2X/DAY
     Route: 048
     Dates: start: 20110421, end: 20110523
  2. BENDROFLUMETHIAZIDE [Concomitant]
     Indication: HYPERTENSION
     Dosage: 2.5 MG, 1X/DAY
     Route: 048
     Dates: end: 20110221
  3. INVESTIGATIONAL DRUG [Suspect]
     Dosage: UNK, 2X/DAY
     Route: 048
     Dates: start: 20110301, end: 20110323
  4. ATENOLOL [Suspect]
     Indication: HYPERTENSION
     Dosage: 50 MG, DAILY
     Route: 048
     Dates: start: 20110401, end: 20110412
  5. ATENOLOL [Suspect]
     Dosage: 50 MG, 1X/DAY
     Route: 048
  6. INVESTIGATIONAL DRUG [Suspect]
     Dosage: 160 MG, 1X/DAY
     Route: 048
     Dates: start: 20110524, end: 20110525
  7. INVESTIGATIONAL DRUG [Suspect]
     Indication: COLORECTAL CANCER
     Dosage: 160 MG, 1X/DAY
     Route: 048
     Dates: start: 20110222
  8. SPIRONOLACTONE [Suspect]
     Indication: HYPERTENSION
     Dosage: 100 MG, 1X/DAY
     Route: 048
     Dates: start: 20110222
  9. INVESTIGATIONAL DRUG [Suspect]
     Dosage: 160 MG, 1X/DAY
     Route: 048
     Dates: start: 20110420, end: 20110420
  10. ROSUVASTATIN [Concomitant]
     Indication: HYPERCHOLESTEROLAEMIA
     Dosage: 10 MG, 1X/DAY
     Route: 048
     Dates: start: 20110214
  11. SIMVASTATIN [Concomitant]
     Indication: HYPERCHOLESTEROLAEMIA
     Dosage: 40 MG, 1X/DAY
     Route: 048
     Dates: end: 20110214

REACTIONS (2)
  - SINUS BRADYCARDIA [None]
  - HYPOKALAEMIA [None]
